FAERS Safety Report 9643277 (Version 1)
Quarter: 2013Q4

REPORT INFORMATION
  Report Type: Spontaneous
  Country: US (occurrence: US)
  Receive Date: 20131024
  Receipt Date: 20131024
  Transmission Date: 20140711
  Serious: No
  Sender: FDA-Public Use
  Company Number: US-ABBVIE-13P-163-1106779-00

PATIENT
  Sex: Female

DRUGS (2)
  1. TARKA ER 2 MG/240 MG [Suspect]
     Indication: HYPERTENSION
  2. TARKA ER 4 MG/240 MG [Suspect]
     Indication: HYPERTENSION

REACTIONS (1)
  - Drug dispensing error [Recovered/Resolved]
